FAERS Safety Report 22039305 (Version 2)
Quarter: 2023Q1

REPORT INFORMATION
  Report Type: Other
  Country: HU (occurrence: None)
  Receive Date: 20230227
  Receipt Date: 20230315
  Transmission Date: 20230417
  Serious: Yes (Hospitalization)
  Sender: FDA-Public Use
  Company Number: HU-ROCHE-3290753

PATIENT
  Age: 15 Year
  Sex: Male
  Weight: 50 kg

DRUGS (4)
  1. RISDIPLAM [Suspect]
     Active Substance: RISDIPLAM
     Indication: Spinal muscular atrophy
     Route: 048
     Dates: start: 20200625
  2. ESOMEPRAZOLE [Concomitant]
     Active Substance: ESOMEPRAZOLE
     Dosage: 2 X 20 MG
  3. ACTRAPID [Concomitant]
     Active Substance: INSULIN HUMAN
     Dosage: 8 IU IN THE MORNING, 10 IU AT NOON, 8 IU IN THE EVENING
  4. METFORMIN [Concomitant]
     Active Substance: METFORMIN HYDROCHLORIDE
     Dosage: 1X500MG IN THE EVENING

REACTIONS (2)
  - Diabetes mellitus [Unknown]
  - Mechanical ventilation [Unknown]

NARRATIVE: CASE EVENT DATE: 20221129
